FAERS Safety Report 13895882 (Version 1)
Quarter: 2017Q3

REPORT INFORMATION
  Report Type: Spontaneous
  Country: US (occurrence: US)
  Receive Date: 20170821
  Receipt Date: 20170821
  Transmission Date: 20171127
  Serious: Yes (Death)
  Sender: FDA-Public Use
  Company Number: None

PATIENT
  Age: 86 Year
  Sex: Female

DRUGS (10)
  1. FISH OIL [Concomitant]
     Active Substance: FISH OIL
  2. CAPECITABINE. [Suspect]
     Active Substance: CAPECITABINE
     Indication: BONE CANCER
     Route: 048
     Dates: start: 20170628, end: 20170818
  3. CLONIDINE ER [Concomitant]
     Active Substance: CLONIDINE
  4. PRAVASTATIN. [Concomitant]
     Active Substance: PRAVASTATIN
  5. OXYCODONE ER [Concomitant]
     Active Substance: OXYCODONE
  6. VALSARTAN. [Concomitant]
     Active Substance: VALSARTAN
  7. ASPIRIN. [Concomitant]
     Active Substance: ASPIRIN
  8. FENTANYL. [Concomitant]
     Active Substance: FENTANYL
  9. VERAPAMIL ER [Concomitant]
     Active Substance: VERAPAMIL HYDROCHLORIDE
  10. MEGESTROL [Concomitant]
     Active Substance: MEGESTROL

REACTIONS (1)
  - Disease progression [None]
